FAERS Safety Report 11646688 (Version 2)
Quarter: 2016Q2

REPORT INFORMATION
  Report Type: Spontaneous
  Country: US (occurrence: US)
  Receive Date: 20151020
  Receipt Date: 20160504
  Transmission Date: 20160815
  Serious: No
  Sender: FDA-Public Use
  Company Number: US-ROCHE-ITM201506IM018319

PATIENT
  Sex: Male
  Weight: 82.63 kg

DRUGS (2)
  1. ESBRIET [Suspect]
     Active Substance: PIRFENIDONE
     Dosage: 2 CAPSULE
     Route: 048
     Dates: start: 20150326
  2. ESBRIET [Suspect]
     Active Substance: PIRFENIDONE
     Indication: IDIOPATHIC PULMONARY FIBROSIS
     Dosage: 3 CAPSULE
     Route: 048
     Dates: start: 20150326

REACTIONS (5)
  - Abdominal distension [Unknown]
  - Vomiting [Unknown]
  - Retching [Unknown]
  - Diarrhoea [Unknown]
  - Nausea [Unknown]
